FAERS Safety Report 4975715-7 (Version None)
Quarter: 2006Q2

REPORT INFORMATION
  Report Type: 
  Country: None (occurrence: None)
  Receive Date: 20060411
  Receipt Date: 20060329
  Transmission Date: 20061013
  Serious: Yes (Other)
  Sender: FDA-Public Use
  Company Number: 2006044302

PATIENT
  Age: 60 Year
  Sex: Female

DRUGS (2)
  1. ZITHROMAX [Suspect]
     Indication: TENDON OPERATION
     Dosage: 500 MG (500 MG, 1 IN 1 D), ORAL
     Route: 048
     Dates: start: 20060322, end: 20060328
  2. GANTIL (TOLFENAMIC ACID) [Concomitant]

REACTIONS (1)
  - DIARRHOEA HAEMORRHAGIC [None]
